FAERS Safety Report 10037820 (Version 2)
Quarter: 2014Q2

REPORT INFORMATION
  Report Type: Spontaneous
  Country: SK (occurrence: SK)
  Receive Date: 20140326
  Receipt Date: 20140403
  Transmission Date: 20141212
  Serious: Yes (Other)
  Sender: FDA-Public Use
  Company Number: DE-ASTRAZENECA-2014SE20640

PATIENT
  Age: 77 Year
  Sex: Female

DRUGS (2)
  1. OMEPRAZOLE [Suspect]
     Dosage: DOSE 337,
     Route: 048
  2. ASPIRIN [Suspect]
     Dosage: DOSE 245

REACTIONS (5)
  - Gastritis erosive [Unknown]
  - Colitis microscopic [Unknown]
  - Gastrointestinal candidiasis [Unknown]
  - Diarrhoea [Recovered/Resolved]
  - Abnormal loss of weight [Recovered/Resolved]
